FAERS Safety Report 21088524 (Version 1)
Quarter: 2022Q3

REPORT INFORMATION
  Report Type: Report from Study
  Country: CA (occurrence: CA)
  Receive Date: 20220715
  Receipt Date: 20220715
  Transmission Date: 20221027
  Serious: Yes (Death)
  Sender: FDA-Public Use
  Company Number: CA-PFIZER INC-202200962364

PATIENT

DRUGS (3)
  1. CISPLATIN [Suspect]
     Active Substance: CISPLATIN
     Indication: Lymphoma
     Dosage: BY 24-HOUR CONTINUOUS INFUSION ON DAY 1 AT 21-DAY INTERVALS
     Route: 042
  2. CYTARABINE [Suspect]
     Active Substance: CYTARABINE
     Indication: Lymphoma
     Dosage: OVER 3 HOURS ONCE EVERY 12 HOURS FOR TWO DOSES ON DAY 2 AT 21-DAY INTERVALS
     Route: 042
  3. DEXAMETHASONE [Suspect]
     Active Substance: DEXAMETHASONE
     Indication: Lymphoma
     Dosage: PER DAY ON DAYS 1 THROUGH 4 AT 21-DAY INTERVALS
     Route: 048

REACTIONS (1)
  - Death [Fatal]
